FAERS Safety Report 10464011 (Version 1)
Quarter: 2014Q3

REPORT INFORMATION
  Report Type: Report from Study
  Country: CA (occurrence: CA)
  Receive Date: 20140919
  Receipt Date: 20140919
  Transmission Date: 20150326
  Serious: Yes (Hospitalization)
  Sender: FDA-Public Use
  Company Number: CA-JNJFOC-20140909953

PATIENT
  Age: 50 Year
  Sex: Female
  Weight: 79 kg

DRUGS (25)
  1. FENTANYL. [Concomitant]
     Active Substance: FENTANYL
     Dosage: 1 PATCH EVERY OTHER DAY
     Route: 065
     Dates: start: 20130426
  2. CORTIFOAM AEROSOL [Concomitant]
     Route: 054
     Dates: start: 20140108
  3. AMITRIPTYLINE [Concomitant]
     Active Substance: AMITRIPTYLINE
     Route: 065
     Dates: start: 20140814
  4. CLOTRIMADERM [Concomitant]
     Route: 065
     Dates: start: 20140430
  5. FRAGMIN [Concomitant]
     Active Substance: DALTEPARIN SODIUM
     Route: 058
     Dates: start: 20140709
  6. WELLBUTRIN XL [Concomitant]
     Active Substance: BUPROPION HYDROCHLORIDE
     Route: 065
     Dates: start: 20140529
  7. DILAUDID [Concomitant]
     Active Substance: HYDROMORPHONE HYDROCHLORIDE
     Dosage: AS NECESSARY
     Route: 065
     Dates: start: 20140829
  8. INNOHEP [Concomitant]
     Active Substance: TINZAPARIN SODIUM
     Route: 058
     Dates: start: 20140821
  9. CITALOPRAM [Concomitant]
     Active Substance: CITALOPRAM HYDROBROMIDE
     Route: 065
     Dates: start: 20140815
  10. CITALOPRAM [Concomitant]
     Active Substance: CITALOPRAM HYDROBROMIDE
     Route: 065
     Dates: start: 20121106
  11. LYDERM 0.05% [Concomitant]
     Route: 065
     Dates: start: 20140428
  12. TRIAMCINOLONE [Concomitant]
     Active Substance: TRIAMCINOLONE
     Dosage: VIAL FOR OFFICE ADMINISTRATION
     Route: 065
     Dates: start: 20121123
  13. LENOLTECH NO 3 [Concomitant]
     Dosage: 1-2 TABLETS EVRY 4 HOURS AS NECESSARY
     Route: 065
     Dates: start: 20140228
  14. PREMARIN VAGINAL [Concomitant]
     Active Substance: ESTROGENS, CONJUGATED
     Route: 067
     Dates: start: 20131230
  15. METRONIDAZOLE. [Concomitant]
     Active Substance: METRONIDAZOLE
     Route: 065
     Dates: start: 20140814
  16. FLOVENT HFA [Concomitant]
     Active Substance: FLUTICASONE PROPIONATE
     Route: 065
     Dates: start: 20140428
  17. REMICADE [Suspect]
     Active Substance: INFLIXIMAB
     Indication: CROHN^S DISEASE
     Dosage: SECOND LOADING DOSE
     Route: 042
     Dates: start: 20140911
  18. RABEPRAZOLE [Concomitant]
     Active Substance: RABEPRAZOLE
     Route: 065
     Dates: start: 20140814
  19. FRAGMIN [Concomitant]
     Active Substance: DALTEPARIN SODIUM
     Route: 058
     Dates: start: 20140707
  20. LORAZEPAM. [Concomitant]
     Active Substance: LORAZEPAM
     Route: 065
     Dates: start: 20121106
  21. REMICADE [Suspect]
     Active Substance: INFLIXIMAB
     Indication: CROHN^S DISEASE
     Dosage: LOADING (L2) DOSE
     Route: 042
     Dates: start: 201408
  22. FENTANYL. [Concomitant]
     Active Substance: FENTANYL
     Route: 065
     Dates: start: 20140829
  23. CIPROFLOXACIN. [Concomitant]
     Active Substance: CIPROFLOXACIN
     Route: 065
     Dates: start: 20140814
  24. CLONAZEPAM. [Concomitant]
     Active Substance: CLONAZEPAM
     Route: 065
     Dates: start: 20140730
  25. METROLOTION [Concomitant]
     Active Substance: METRONIDAZOLE
     Route: 065
     Dates: start: 20130703

REACTIONS (9)
  - Cyanosis [Unknown]
  - Heart rate increased [Unknown]
  - Feeling cold [Not Recovered/Not Resolved]
  - Purulent discharge [Unknown]
  - Infusion related reaction [Not Recovered/Not Resolved]
  - Nausea [Recovered/Resolved]
  - Chills [Not Recovered/Not Resolved]
  - Thrombosis [Unknown]
  - Pallor [Unknown]

NARRATIVE: CASE EVENT DATE: 20140911
